FAERS Safety Report 6096879-0 (Version None)
Quarter: 2009Q1

REPORT INFORMATION
  Report Type: 
  Country: None (occurrence: None)
  Receive Date: 20090225
  Receipt Date: 20090225
  Transmission Date: 20090719
  Serious: Yes (Life-Threatening, Hospitalization)
  Sender: FDA-Public Use
  Company Number: None

PATIENT
  Age: 19 Year
  Sex: Female
  Weight: 60 kg

DRUGS (3)
  1. YAZ [Suspect]
     Indication: ACNE
     Dosage: DAILY PO
     Route: 048
     Dates: start: 20080707, end: 20081229
  2. YAZ [Suspect]
     Indication: CONTRACEPTION
     Dosage: DAILY PO
     Route: 048
     Dates: start: 20080707, end: 20081229
  3. YAZ [Suspect]
     Indication: DYSMENORRHOEA
     Dosage: DAILY PO
     Route: 048
     Dates: start: 20080707, end: 20081229

REACTIONS (1)
  - PULMONARY EMBOLISM [None]
